FAERS Safety Report 17122244 (Version 1)
Quarter: 2019Q4

REPORT INFORMATION
  Report Type: Spontaneous
  Country: US (occurrence: US)
  Receive Date: 20191114
  Receipt Date: 20191114
  Transmission Date: 20200122
  Serious: Yes (Hospitalization)
  Sender: FDA-Public Use
  Company Number: None

PATIENT
  Sex: Male
  Weight: 95.5 kg

DRUGS (3)
  1. DEXAMETHASONE (34521) [Suspect]
     Active Substance: DEXAMETHASONE
  2. VELCADE [Concomitant]
     Active Substance: BORTEZOMIB
  3. LENALIDOMIDE (CC-5013) [Suspect]
     Active Substance: LENALIDOMIDE

REACTIONS (8)
  - Left atrial enlargement [None]
  - Hypercalcaemia [None]
  - Electrocardiogram QT prolonged [None]
  - Pneumonia [None]
  - Sinus arrhythmia [None]
  - Ventricular extrasystoles [None]
  - Chest pain [None]
  - Pleural effusion [None]

NARRATIVE: CASE EVENT DATE: 20150609
